FAERS Safety Report 4486136-8 (Version None)
Quarter: 2004Q4

REPORT INFORMATION
  Report Type: 
  Country: None (occurrence: None)
  Receive Date: 20041026
  Receipt Date: 20041018
  Transmission Date: 20050328
  Serious: Yes (Death, Hospitalization)
  Sender: FDA-Public Use
  Company Number: BR-MERCK-0410BRA00387

PATIENT
  Age: 72 Year
  Sex: Female

DRUGS (3)
  1. VIOXX [Suspect]
     Indication: ABDOMINAL PAIN
     Route: 048
     Dates: start: 20030101, end: 20040101
  2. VIOXX [Suspect]
     Indication: UTERINE PROLAPSE
     Route: 048
     Dates: start: 20030101, end: 20040101
  3. BUTYLSCOPOLAMINE BROMIDE [Concomitant]
     Indication: ABDOMINAL PAIN
     Route: 048
     Dates: start: 20031001, end: 20031101

REACTIONS (2)
  - MULTI-ORGAN FAILURE [None]
  - UTERINE CANCER [None]
